FAERS Safety Report 5358629-2 (Version None)
Quarter: 2007Q2

REPORT INFORMATION
  Report Type: 
  Country: None (occurrence: None)
  Receive Date: 20070601
  Receipt Date: 20070212
  Transmission Date: 20071010
  Serious: No
  Sender: FDA-Public Use
  Company Number: PHEH2007US01936

PATIENT
  Age: 76 Year
  Sex: Male

DRUGS (2)
  1. ENABLEX [Suspect]
     Indication: HYPERTONIC BLADDER
     Dosage: 15 MG, QD
     Dates: start: 20070206
  2. OXYCODONE HCL [Suspect]
     Indication: BACK PAIN
     Dates: start: 19980101

REACTIONS (2)
  - CONSTIPATION [None]
  - INFREQUENT BOWEL MOVEMENTS [None]
